FAERS Safety Report 24830248 (Version 1)
Quarter: 2025Q1

REPORT INFORMATION
  Report Type: Spontaneous
  Country: US (occurrence: US)
  Receive Date: 20250110
  Receipt Date: 20250110
  Transmission Date: 20250408
  Serious: Yes (Life-Threatening)
  Sender: ACCORD
  Company Number: US-MLMSERVICE-20241226-PI324077-00152-1

PATIENT
  Age: 71 Year
  Sex: Male

DRUGS (1)
  1. FLUOROURACIL [Suspect]
     Active Substance: FLUOROURACIL
     Indication: Adenocarcinoma of colon

REACTIONS (1)
  - Enteritis [Recovered/Resolved]
